FAERS Safety Report 9756488 (Version 1)
Quarter: 2013Q4

REPORT INFORMATION
  Report Type: Spontaneous
  Country: US (occurrence: US)
  Receive Date: 20131213
  Receipt Date: 20131213
  Transmission Date: 20140711
  Serious: No
  Sender: FDA-Public Use
  Company Number: US-GLAXOSMITHKLINE-A1043029A

PATIENT
  Age: 45 Year
  Sex: Female

DRUGS (1)
  1. NICOTINE PATCH UNKNOWN BRAND [Suspect]
     Indication: EX-TOBACCO USER

REACTIONS (8)
  - Application site pain [Unknown]
  - Application site erythema [Recovered/Resolved]
  - Application site irritation [Recovered/Resolved]
  - Application site haemorrhage [Recovered/Resolved]
  - Application site dryness [Not Recovered/Not Resolved]
  - Application site reaction [Not Recovered/Not Resolved]
  - Application site pain [Not Recovered/Not Resolved]
  - Drug administration error [Unknown]
